FAERS Safety Report 7843625-3 (Version None)
Quarter: 2011Q4

REPORT INFORMATION
  Report Type: 
  Country: None (occurrence: None)
  Receive Date: 20111025
  Receipt Date: 20111020
  Transmission Date: 20120403
  Serious: Yes (Hospitalization)
  Sender: FDA-Public Use
  Company Number: AR-ROCHE-1005967

PATIENT
  Sex: Female
  Weight: 50 kg

DRUGS (3)
  1. MABTHERA [Suspect]
     Indication: MANTLE CELL LYMPHOMA
     Route: 042
     Dates: start: 20110927
  2. CORTICOID TOPICAL APPLICATION (UNKNOWN TYPE) [Concomitant]
  3. REVLIMID [Concomitant]

REACTIONS (3)
  - COLONIC OBSTRUCTION [None]
  - LEUKOPENIA [None]
  - GASTROINTESTINAL INFLAMMATION [None]
